FAERS Safety Report 7709535-7 (Version None)
Quarter: 2011Q3

REPORT INFORMATION
  Report Type: 
  Country: None (occurrence: None)
  Receive Date: 20110825
  Receipt Date: 20110816
  Transmission Date: 20111222
  Serious: Yes (Other)
  Sender: FDA-Public Use
  Company Number: US-AMGEN-USASP2011039321

PATIENT
  Age: 38 Year
  Sex: Female

DRUGS (3)
  1. ENBREL [Suspect]
     Indication: RHEUMATOID ARTHRITIS
     Dosage: 50 MG, QWK
     Dates: start: 20101001
  2. ENBREL [Suspect]
     Indication: PALINDROMIC RHEUMATISM
  3. ENBREL [Suspect]
     Indication: ARTHRITIS

REACTIONS (9)
  - THERAPEUTIC RESPONSE DECREASED [None]
  - INJECTION SITE ERYTHEMA [None]
  - URTICARIA [None]
  - HYPERSENSITIVITY [None]
  - ARTHRALGIA [None]
  - LUNG DISORDER [None]
  - ARTHRITIS [None]
  - DRUG HYPERSENSITIVITY [None]
  - INJECTION SITE PAIN [None]
